FAERS Safety Report 5586445-5 (Version None)
Quarter: 2008Q1

REPORT INFORMATION
  Report Type: 
  Country: None (occurrence: None)
  Receive Date: 20080110
  Receipt Date: 20080102
  Transmission Date: 20080703
  Serious: Yes (Hospitalization, Other)
  Sender: FDA-Public Use
  Company Number: IL-ABBOTT-08P-082-0432009-00

PATIENT
  Age: 64 Year
  Sex: Female

DRUGS (4)
  1. WARFARIN SODIUM [Suspect]
     Indication: ANTICOAGULANT THERAPY
     Route: 065
  2. ASPIRIN [Suspect]
     Indication: DRUG USE FOR UNKNOWN INDICATION
     Route: 065
  3. ENOXAPARIN [Concomitant]
     Indication: ANTICOAGULANT THERAPY
  4. ENOXAPARIN [Concomitant]
     Route: 065

REACTIONS (2)
  - PROTEIN S DEFICIENCY [None]
  - THROMBOSIS [None]
